FAERS Safety Report 6615558-1 (Version None)
Quarter: 2010Q1

REPORT INFORMATION
  Report Type: 
  Country: None (occurrence: None)
  Receive Date: 20100305
  Receipt Date: 20100223
  Transmission Date: 20100710
  Serious: Yes (Hospitalization)
  Sender: FDA-Public Use
  Company Number: US-ROCHE-687596

PATIENT
  Age: 35 Year
  Sex: Male
  Weight: 93.4 kg

DRUGS (2)
  1. BEVACIZUMAB [Suspect]
     Indication: GLIOBLASTOMA MULTIFORME
     Dosage: DAY1 EVERY 14 DAYS. DISCONTINUED.
     Route: 042
     Dates: start: 20100113
  2. SORAFENIB [Suspect]
     Indication: GLIOBLASTOMA MULTIFORME
     Dosage: DAILY DAY1-14. WITHHELD
     Route: 048
     Dates: start: 20100113

REACTIONS (3)
  - CONVULSION [None]
  - STAPHYLOCOCCAL INFECTION [None]
  - WOUND COMPLICATION [None]
